FAERS Safety Report 10061236 (Version 1)
Quarter: 2014Q2

REPORT INFORMATION
  Report Type: Spontaneous
  Country: IT (occurrence: IT)
  Receive Date: 20140407
  Receipt Date: 20140407
  Transmission Date: 20141212
  Serious: Yes (Hospitalization)
  Sender: FDA-Public Use
  Company Number: IT-ROCHE-1372375

PATIENT
  Age: 30 Year
  Sex: Female

DRUGS (4)
  1. VALIUM [Suspect]
     Indication: PRODUCT USED FOR UNKNOWN INDICATION
     Route: 048
     Dates: start: 20131210, end: 20131210
  2. XANAX [Suspect]
     Indication: PRODUCT USED FOR UNKNOWN INDICATION
     Route: 048
     Dates: start: 20131210, end: 20131210
  3. PAROXETINE [Concomitant]
     Route: 048
  4. ORAP [Concomitant]
     Indication: DEPRESSION
     Route: 048

REACTIONS (3)
  - Head injury [Unknown]
  - Intentional self-injury [Unknown]
  - Toxicity to various agents [Unknown]
